FAERS Safety Report 7339743-9 (Version None)
Quarter: 2011Q1

REPORT INFORMATION
  Report Type: 
  Country: None (occurrence: None)
  Receive Date: 20110309
  Receipt Date: 20110217
  Transmission Date: 20110831
  Serious: Yes (Hospitalization, Other)
  Sender: FDA-Public Use
  Company Number: US-BAYER-201018323NA

PATIENT
  Sex: Female
  Weight: 80.455 kg

DRUGS (21)
  1. PAXIL [Concomitant]
     Dosage: UNK
     Dates: start: 20080115
  2. ZETIA [Concomitant]
     Dosage: 1 MG, UNK
     Dates: start: 20070129
  3. YASMIN [Suspect]
     Dosage: UNK
     Dates: start: 20080115, end: 20080415
  4. ASCORBIC ACID [Concomitant]
     Route: 065
  5. PERCOCET [Concomitant]
     Indication: PAIN
     Dosage: Q6H
     Route: 065
     Dates: start: 20070313
  6. YASMIN [Suspect]
     Dosage: UNK UNK, UNK
     Route: 048
     Dates: start: 20061101
  7. MULTI-VITAMIN [Concomitant]
     Route: 065
  8. PAXIL [Concomitant]
     Indication: ANXIETY
     Dosage: 12.5 MG (DAILY DOSE), QD, ORAL
     Route: 048
     Dates: start: 20050101, end: 20080615
  9. YASMIN [Suspect]
     Dosage: UNK UNK, UNK
     Route: 048
     Dates: start: 20090901, end: 20100815
  10. OCELLA [Suspect]
     Indication: PRODUCT USED FOR UNKNOWN INDICATION
     Route: 065
     Dates: start: 20080701, end: 20090815
  11. HERBAL PREPARATION [Concomitant]
     Route: 065
     Dates: end: 20070101
  12. UNCODEABLE ^UNCLASSIFIABLE^ [Concomitant]
     Dosage: 50 MG, UNK
     Dates: start: 20090716
  13. HERBAL PREPARATION [Concomitant]
     Route: 065
     Dates: end: 20070101
  14. PAROXETINE [Concomitant]
     Dosage: UNK
     Dates: start: 20050112
  15. ALPRAZOLAM [Concomitant]
     Dosage: UNK
     Dates: start: 20071010
  16. YASMIN [Suspect]
     Indication: PRODUCT USED FOR UNKNOWN INDICATION
     Dosage: UNK UNK, UNK
     Route: 048
     Dates: start: 20041201, end: 20060615
  17. ADVIL [Concomitant]
     Indication: HEADACHE
     Route: 065
  18. BCP (UNCLASSIFIABLE) [Concomitant]
  19. YAZ [Suspect]
     Indication: PRODUCT USED FOR UNKNOWN INDICATION
     Route: 048
     Dates: start: 20080401, end: 20080715
  20. YAZ [Suspect]
     Dosage: UNK
     Dates: start: 20080115
  21. ALEVE [Concomitant]
     Indication: HEADACHE
     Route: 065

REACTIONS (5)
  - CHOLECYSTITIS CHRONIC [None]
  - OVARIAN CYST RUPTURED [None]
  - CHOLESTEROSIS [None]
  - ABDOMINAL PAIN UPPER [None]
  - NAUSEA [None]
